FAERS Safety Report 16622770 (Version 8)
Quarter: 2019Q4

REPORT INFORMATION
  Report Type: Report from Study
  Country: US (occurrence: US)
  Receive Date: 20190723
  Receipt Date: 20191030
  Transmission Date: 20200122
  Serious: Yes (Death, Hospitalization)
  Sender: FDA-Public Use
  Company Number: US-ACTELION-A-US2015-114522

PATIENT
  Age: 75 Year
  Sex: Female
  Weight: 46.71 kg

DRUGS (16)
  1. IMODIUM [Suspect]
     Active Substance: LOPERAMIDE HYDROCHLORIDE
     Indication: DIARRHOEA
     Route: 065
  2. ADEMPAS [Concomitant]
     Active Substance: RIOCIGUAT
  3. VELETRI [Suspect]
     Active Substance: EPOPROSTENOL
     Dosage: 89.5 NG/KG, PER MIN
     Route: 042
  4. VELETRI [Suspect]
     Active Substance: EPOPROSTENOL
     Dosage: 83.5 NG/KG, PER MIN
     Route: 042
  5. VELETRI [Suspect]
     Active Substance: EPOPROSTENOL
     Dosage: 98.5 NG/KG, PER MIN
     Route: 042
  6. VELETRI [Suspect]
     Active Substance: EPOPROSTENOL
     Dosage: 89.5 NG/KG, PER MIN
     Route: 042
  7. VELETRI [Suspect]
     Active Substance: EPOPROSTENOL
     Dosage: 85.5 NG/KG, PER MIN
     Route: 042
  8. VELETRI [Suspect]
     Active Substance: EPOPROSTENOL
     Dosage: 86.5 NG/KG, PER MIN
     Route: 042
  9. VELETRI [Suspect]
     Active Substance: EPOPROSTENOL
     Dosage: 30 NG
     Route: 042
  10. VELETRI [Suspect]
     Active Substance: EPOPROSTENOL
     Dosage: 12 NG/KG, PER MIN
     Route: 042
     Dates: start: 20150304
  11. VELETRI [Suspect]
     Active Substance: EPOPROSTENOL
     Indication: PULMONARY ARTERIAL HYPERTENSION
     Dosage: 38.5 NG/KG, PER MIN
     Route: 042
  12. AMBRISENTAN [Concomitant]
     Active Substance: AMBRISENTAN
  13. VELETRI [Suspect]
     Active Substance: EPOPROSTENOL
     Dosage: 19 NG/KG, PER MIN
     Route: 042
     Dates: start: 20150305
  14. VELETRI [Suspect]
     Active Substance: EPOPROSTENOL
     Dosage: 94.5 NG/KG, PER MIN
     Route: 042
  15. VELETRI [Suspect]
     Active Substance: EPOPROSTENOL
     Dosage: 97.5 NG/KG, PER MIN
     Route: 042
  16. ADCIRCA [Concomitant]
     Active Substance: TADALAFIL

REACTIONS (35)
  - Renal disorder [Unknown]
  - Oedema [Unknown]
  - Renal impairment [Unknown]
  - Dyspepsia [Unknown]
  - Weight decreased [Unknown]
  - Pain in jaw [Not Recovered/Not Resolved]
  - Catheter site haemorrhage [Recovered/Resolved]
  - Death [Fatal]
  - Back pain [Unknown]
  - Abdominal distension [Unknown]
  - Device dislocation [Recovered/Resolved]
  - Dizziness [Unknown]
  - Abdominal pain upper [Unknown]
  - Wheezing [Unknown]
  - Blood creatinine decreased [Unknown]
  - Balance disorder [Unknown]
  - Abdominal discomfort [Unknown]
  - Fatigue [Unknown]
  - Product dose omission [Unknown]
  - Biopsy liver [Unknown]
  - Bronchitis [Unknown]
  - Headache [Unknown]
  - Dyspnoea exertional [Unknown]
  - Constipation [Not Recovered/Not Resolved]
  - Malaise [Unknown]
  - Device alarm issue [Recovered/Resolved]
  - Hepatic haemorrhage [Unknown]
  - Fluid overload [Unknown]
  - Oedema peripheral [Unknown]
  - Nausea [Unknown]
  - Diarrhoea [Not Recovered/Not Resolved]
  - Dyspnoea [Unknown]
  - Decreased appetite [Unknown]
  - Rash erythematous [Unknown]
  - Anal incontinence [Unknown]

NARRATIVE: CASE EVENT DATE: 20190709
